FAERS Safety Report 6508989-1 (Version None)
Quarter: 2009Q4

REPORT INFORMATION
  Report Type: 
  Country: None (occurrence: None)
  Receive Date: 20091221
  Receipt Date: 20090908
  Transmission Date: 20100525
  Serious: No
  Sender: FDA-Public Use
  Company Number: US-ASTRAZENECA-2009SE12037

PATIENT
  Age: 70 Year
  Sex: Female
  Weight: 62.6 kg

DRUGS (4)
  1. CRESTOR [Suspect]
     Indication: BLOOD CHOLESTEROL INCREASED
     Route: 048
     Dates: start: 20090301, end: 20090801
  2. TENORMIN [Suspect]
     Indication: HYPERTENSION
  3. SYNTHROID [Concomitant]
  4. NORVASC [Concomitant]

REACTIONS (3)
  - MALAISE [None]
  - MUSCLE SPASMS [None]
  - NERVOUSNESS [None]
